FAERS Safety Report 7636016-1 (Version None)
Quarter: 2011Q3

REPORT INFORMATION
  Report Type: 
  Country: None (occurrence: None)
  Receive Date: 20110726
  Receipt Date: 20110720
  Transmission Date: 20111222
  Serious: Yes (Hospitalization)
  Sender: FDA-Public Use
  Company Number: CN-ROCHE-788043

PATIENT
  Age: 37 Year
  Sex: Female

DRUGS (1)
  1. PEGASYS [Suspect]
     Route: 065
     Dates: start: 20101201

REACTIONS (1)
  - THYROID ADENOMA [None]
